FAERS Safety Report 23610206 (Version 1)
Quarter: 2024Q1

REPORT INFORMATION
  Report Type: Spontaneous
  Country: ES (occurrence: ES)
  Receive Date: 20240308
  Receipt Date: 20240308
  Transmission Date: 20240410
  Serious: Yes (Other)
  Sender: FDA-Public Use
  Company Number: ES-SUN PHARMACEUTICAL INDUSTRIES LTD-2024RR-434408

PATIENT
  Age: 89 Year
  Sex: Female

DRUGS (4)
  1. VALSARTAN [Suspect]
     Active Substance: VALSARTAN
     Indication: Cardiac failure congestive
     Dosage: 40 MILLIGRAM, DAILY, 0-0.5-0
     Route: 048
     Dates: start: 20231101, end: 20231106
  2. FUROSEMIDE [Suspect]
     Active Substance: FUROSEMIDE
     Indication: Cardiac failure congestive
     Dosage: 40 MILLIGRAM, DAILY
     Route: 048
     Dates: start: 20141216, end: 20231031
  3. FUROSEMIDE [Suspect]
     Active Substance: FUROSEMIDE
     Dosage: 60 MILLIGRAM, DAILY
     Route: 048
     Dates: start: 20231031, end: 20231106
  4. FUROSEMIDE [Suspect]
     Active Substance: FUROSEMIDE
     Dosage: 40 MILLIGRAM, DAILY
     Route: 048
     Dates: start: 20231111

REACTIONS (1)
  - Hyponatraemia [Recovered/Resolved]

NARRATIVE: CASE EVENT DATE: 20231105
